FAERS Safety Report 21774050 (Version 5)
Quarter: 2023Q2

REPORT INFORMATION
  Report Type: Report from Study
  Country: CA (occurrence: CA)
  Receive Date: 20221223
  Receipt Date: 20230511
  Transmission Date: 20230722
  Serious: Yes (Hospitalization, Other)
  Sender: FDA-Public Use
  Company Number: CA-OTSUKA-2022_055734

PATIENT
  Sex: Female

DRUGS (3)
  1. CEDAZURIDINE\DECITABINE [Suspect]
     Active Substance: CEDAZURIDINE\DECITABINE
     Indication: Myelodysplastic syndrome
     Dosage: UNK,(35 MG DECITABINE AND 100 MG CEDAZURIDINE)
     Route: 065
     Dates: start: 20221129
  2. CEDAZURIDINE\DECITABINE [Suspect]
     Active Substance: CEDAZURIDINE\DECITABINE
     Dosage: UNK (35 MG DECITABINE AND 100 MG CEDAZURIDINE) (FIVE TABLETS)
     Route: 065
  3. LIDOCAINE [Suspect]
     Active Substance: LIDOCAINE
     Indication: Product used for unknown indication
     Dosage: UNK
     Route: 065

REACTIONS (10)
  - Full blood count abnormal [Unknown]
  - Cardiac flutter [Unknown]
  - Leukaemia [Unknown]
  - Haemoglobin decreased [Unknown]
  - Biopsy bone marrow [Unknown]
  - Mouth swelling [Unknown]
  - Gait disturbance [Unknown]
  - Nausea [Recovered/Resolved]
  - Infection [Recovered/Resolved]
  - Therapy interrupted [Unknown]
